FAERS Safety Report 12635839 (Version 1)
Quarter: 2016Q3

REPORT INFORMATION
  Report Type: Spontaneous
  Country: JP (occurrence: JP)
  Receive Date: 20160809
  Receipt Date: 20160809
  Transmission Date: 20161109
  Serious: Yes (Other)
  Sender: FDA-Public Use
  Company Number: JP-009507513-1608JPN003838

PATIENT
  Age: 67 Year
  Sex: Male

DRUGS (13)
  1. PLAVIX [Concomitant]
     Active Substance: CLOPIDOGREL BISULFATE
     Dosage: DAILY DOSAGE UNKNOWN; FORMULATION: POR
     Route: 048
  2. METGLUCO [Concomitant]
     Active Substance: METFORMIN HYDROCHLORIDE
     Dosage: DAILY DOSAGE UNKNOWN; FORMULATION: POR
     Route: 048
  3. EUGLUCON [Concomitant]
     Active Substance: GLYBURIDE
     Dosage: DAILY DOSAGE UNKNOWN; FORMULATION: POR
     Route: 048
  4. ZYLORIC [Concomitant]
     Active Substance: ALLOPURINOL
     Dosage: DAILY DOSAGE UNKNOWN; FORMULATION: POR
     Route: 048
  5. SOVALDI [Suspect]
     Active Substance: SOFOSBUVIR
     Indication: HEPATITIS C
     Dosage: DAILY DOSAGE UNKNOWN; FORMULATION: POR
     Route: 048
     Dates: start: 20160418
  6. ADALAT [Concomitant]
     Active Substance: NIFEDIPINE
     Dosage: DAILY DOSAGE UNKNOWN; FORMULATION: POR
     Route: 048
  7. HALFDIGOXIN [Concomitant]
     Active Substance: DIGOXIN
     Dosage: DAILY DOSAGE UNKNOWN; FORMULATION: POR
     Route: 048
  8. NITOROL [Concomitant]
     Active Substance: ISOSORBIDE DINITRATE
     Dosage: DAILY DOSAGE UNKNOWN
     Route: 065
  9. REBETOL [Suspect]
     Active Substance: RIBAVIRIN
     Indication: HEPATITIS C
     Dosage: DIVIDED DOSE FREQUENCY UNKNOWN
     Route: 048
     Dates: start: 20160418
  10. TRAZENTA [Concomitant]
     Active Substance: LINAGLIPTIN
     Dosage: DAILY DOSAGE UNKNOWN; FORMULATION: POR
     Route: 048
  11. CARVEDILOL. [Concomitant]
     Active Substance: CARVEDILOL
     Dosage: DAILY DOSAGE UNKNOWN; FORMULATION: POR
     Route: 048
  12. FUROSEMIDE. [Concomitant]
     Active Substance: FUROSEMIDE
     Dosage: DAILY DOSAGE UNKNOWN; FORMULATION: POR
     Route: 048
  13. BASEN [Concomitant]
     Active Substance: VOGLIBOSE
     Dosage: DAILY DOSAGE UNKNOWN; FORMULATION: POR
     Route: 048

REACTIONS (1)
  - Cerebral infarction [Unknown]

NARRATIVE: CASE EVENT DATE: 20160618
